FAERS Safety Report 15264654 (Version 1)
Quarter: 2018Q3

REPORT INFORMATION
  Report Type: Spontaneous
  Country: US (occurrence: US)
  Receive Date: 20180723
  Receipt Date: 20180723
  Transmission Date: 20181010
  Serious: No
  Sender: FDA-Public Use
  Company Number: None

PATIENT
  Age: 60 Year
  Sex: Male

DRUGS (1)
  1. REPATHA [Suspect]
     Active Substance: EVOLOCUMAB

REACTIONS (4)
  - Drug ineffective [None]
  - Headache [None]
  - Influenza [None]
  - Nasopharyngitis [None]

NARRATIVE: CASE EVENT DATE: 20180723
